FAERS Safety Report 17323640 (Version 1)
Quarter: 2020Q1

REPORT INFORMATION
  Report Type: Spontaneous
  Country: IT (occurrence: IT)
  Receive Date: 20200127
  Receipt Date: 20200127
  Transmission Date: 20200409
  Serious: Yes (Hospitalization)
  Sender: FDA-Public Use
  Company Number: IT-TEVA-2020-IT-1173182

PATIENT
  Age: 68 Year
  Sex: Male
  Weight: 81 kg

DRUGS (1)
  1. FLUOROURACIL. [Suspect]
     Active Substance: FLUOROURACIL
     Indication: CHEMOTHERAPY
     Dosage: 1200 MG/M2
     Route: 042
     Dates: start: 20191002, end: 20191004

REACTIONS (3)
  - Coronary artery disease [Recovered/Resolved]
  - Electrocardiogram ST segment elevation [Recovered/Resolved]
  - Chest pain [Recovered/Resolved]

NARRATIVE: CASE EVENT DATE: 20191004
